FAERS Safety Report 7178976 (Version 5)
Quarter: 2012Q4

REPORT INFORMATION
  Report Type: 
  Country: CA (occurrence: CA)
  Receive Date: 20091117
  Receipt Date: 20121106
  Transmission Date: 20130627
  Serious: Yes (Death, Hospitalization, Other)
  Sender: FDA-Public Use
  Company Number: PHHY2009CA17082

PATIENT
  Sex: Male

DRUGS (1)
  1. SANDOSTATIN LAR [Suspect]
     Indication: NEUROENDOCRINE TUMOUR
     Dosage: 40 mg every 4 weeks
     Route: 030
     Dates: start: 20070430, end: 20100303

REACTIONS (10)
  - Gastrointestinal carcinoma [Fatal]
  - Blood pressure diastolic decreased [Unknown]
  - Intestinal mass [Unknown]
  - Intestinal obstruction [Unknown]
  - Diarrhoea [Unknown]
  - Physical disability [Unknown]
  - Weight decreased [Unknown]
  - Blood pressure systolic increased [Unknown]
  - Asthenia [Unknown]
  - Heart rate decreased [Unknown]
